FAERS Safety Report 24735095 (Version 2)
Quarter: 2025Q3

REPORT INFORMATION
  Report Type: Spontaneous
  Country: EU (occurrence: EU)
  Receive Date: 20241215
  Receipt Date: 20250803
  Transmission Date: 20251020
  Serious: Yes (Death, Other)
  Sender: ALEXION PHARMACEUTICALS
  Company Number: EU-ASTRAZENECA-202412EEA011072AT

PATIENT
  Age: 72 Year
  Sex: Male

DRUGS (3)
  1. LYNPARZA [Suspect]
     Active Substance: OLAPARIB
     Route: 065
  2. ABIRATERONE [Suspect]
     Active Substance: ABIRATERONE
  3. PREDNISOLONE [Suspect]
     Active Substance: PREDNISOLONE

REACTIONS (5)
  - Death [Fatal]
  - Haematuria [Unknown]
  - Anaemia [Unknown]
  - Diarrhoea [Unknown]
  - Prostatic specific antigen increased [Unknown]
